FAERS Safety Report 12707615 (Version 1)
Quarter: 2016Q3

REPORT INFORMATION
  Report Type: Report from Study
  Country: JP (occurrence: CN)
  Receive Date: 20160901
  Receipt Date: 20160901
  Transmission Date: 20161109
  Serious: Yes (Hospitalization)
  Sender: FDA-Public Use
  Company Number: CN-B.I. PHARMACEUTICALS,INC./RIDGEFIELD-2016-BI-56212YA

PATIENT
  Age: 7 Decade
  Sex: Male

DRUGS (6)
  1. TAMSULOSIN BLINDED [Suspect]
     Active Substance: TAMSULOSIN
     Route: 065
     Dates: start: 20141111, end: 201607
  2. TAMSULOSIN BLINDED [Suspect]
     Active Substance: TAMSULOSIN
     Indication: PRODUCT USED FOR UNKNOWN INDICATION
     Route: 065
     Dates: start: 20141015, end: 20141110
  3. HARNAL [Suspect]
     Active Substance: TAMSULOSIN HYDROCHLORIDE
     Dosage: FORMULATION: ORODISPERSIBLE TABLET; STRENGTH: 0.2MG
     Route: 065
     Dates: start: 20141111, end: 201607
  4. HARNAL [Suspect]
     Active Substance: TAMSULOSIN HYDROCHLORIDE
     Dosage: FORMULATION: ORODISPERSIBLE TABLET; STRENGTH: 0.2MG
     Route: 065
  5. HARNAL [Suspect]
     Active Substance: TAMSULOSIN HYDROCHLORIDE
     Indication: PRODUCT USED FOR UNKNOWN INDICATION
     Dosage: FORMULATION: ORODISPERSIBLE TABLET; STRENGTH: 0.2MG
     Route: 065
     Dates: start: 20141015, end: 20141110
  6. TAMSULOSIN BLINDED [Suspect]
     Active Substance: TAMSULOSIN
     Route: 065

REACTIONS (1)
  - Urinary retention [Recovered/Resolved]

NARRATIVE: CASE EVENT DATE: 20160720
